FAERS Safety Report 8223348-1 (Version None)
Quarter: 2012Q1

REPORT INFORMATION
  Report Type: 
  Country: None (occurrence: None)
  Receive Date: 20120313
  Receipt Date: 20070829
  Transmission Date: 20120608
  Serious: Yes (Death, Life-Threatening)
  Sender: FDA-Public Use
  Company Number: 2007SP017491

PATIENT
  Age: 50 Year
  Sex: Male
  Weight: 73 kg

DRUGS (15)
  1. ZONISAMIDE [Suspect]
     Indication: BRAIN NEOPLASM
     Dosage: PO
     Route: 048
     Dates: start: 20060829
  2. DECADRON [Concomitant]
  3. DEPAKENE [Concomitant]
  4. TEMODAL [Suspect]
     Indication: GLIOBLASTOMA MULTIFORME
     Dosage: 200 MG/M2;QD;PO
     Route: 048
     Dates: start: 20060627, end: 20060808
  5. TEMODAL [Suspect]
     Indication: GLIOBLASTOMA MULTIFORME
     Dosage: 200 MG/M2;QD;PO
     Route: 048
     Dates: start: 20070323, end: 20070327
  6. TEMODAL [Suspect]
     Indication: GLIOBLASTOMA MULTIFORME
     Dosage: 200 MG/M2;QD;PO
     Route: 048
     Dates: start: 20070420, end: 20070424
  7. TEMODAL [Suspect]
     Indication: GLIOBLASTOMA MULTIFORME
     Dosage: 200 MG/M2;QD;PO
     Route: 048
     Dates: start: 20070613, end: 20070617
  8. TEMODAL [Suspect]
     Indication: GLIOBLASTOMA MULTIFORME
     Dosage: 200 MG/M2;QD;PO
     Route: 048
     Dates: start: 20070126, end: 20070130
  9. TEMODAL [Suspect]
     Indication: GLIOBLASTOMA MULTIFORME
     Dosage: 200 MG/M2;QD;PO
     Route: 048
     Dates: start: 20070221, end: 20070226
  10. TEMODAL [Suspect]
     Indication: GLIOBLASTOMA MULTIFORME
     Dosage: 200 MG/M2;QD;PO
     Route: 048
     Dates: start: 20070516, end: 20070520
  11. FAMOTIDINE [Concomitant]
  12. COTRIM [Concomitant]
  13. URALYT [Concomitant]
  14. URINORM [Concomitant]
  15. PROCARBAZINE HYDROCHLORIDE [Concomitant]

REACTIONS (6)
  - HYPONATRAEMIA [None]
  - BRAIN NEOPLASM [None]
  - MONOCYTE COUNT INCREASED [None]
  - LYMPHOCYTE COUNT DECREASED [None]
  - WHITE BLOOD CELL COUNT DECREASED [None]
  - DISEASE PROGRESSION [None]
